FAERS Safety Report 12944336 (Version 1)
Quarter: 2016Q4

REPORT INFORMATION
  Report Type: Spontaneous
  Country: PL (occurrence: PL)
  Receive Date: 20161115
  Receipt Date: 20161115
  Transmission Date: 20170207
  Serious: Yes (Other)
  Sender: FDA-Public Use
  Company Number: PL-TEVA-710817ISR

PATIENT
  Age: 75 Year
  Sex: Female

DRUGS (2)
  1. TELMISARTAN. [Suspect]
     Active Substance: TELMISARTAN
     Indication: HYPERTENSION
     Dosage: 80 MILLIGRAM DAILY; DAILY DOSE: 80MG; IN THE MORNING
     Route: 048
     Dates: start: 20161006, end: 20161027
  2. NEBIVOLOL. [Concomitant]
     Active Substance: NEBIVOLOL

REACTIONS (6)
  - Cough [Recovered/Resolved]
  - Hyperhidrosis [Recovered/Resolved]
  - Pollakiuria [Recovered/Resolved]
  - Blood pressure diastolic abnormal [Recovered/Resolved]
  - Urinary retention [Recovered/Resolved]
  - Vertigo [Recovered/Resolved]

NARRATIVE: CASE EVENT DATE: 201610
